FAERS Safety Report 15474730 (Version 1)
Quarter: 2018Q4

REPORT INFORMATION
  Report Type: Spontaneous
  Country: US (occurrence: US)
  Receive Date: 20181008
  Receipt Date: 20181008
  Transmission Date: 20190205
  Serious: Yes (Other)
  Sender: FDA-Public Use
  Company Number: US-MYLANLABS-2018M1073167

PATIENT
  Sex: Female
  Weight: 136 kg

DRUGS (1)
  1. METOPROLOL MYLAN [Suspect]
     Active Substance: METOPROLOL
     Indication: HYPERTENSION
     Dosage: 100 MG, UNK

REACTIONS (2)
  - Blood pressure increased [Unknown]
  - Drug ineffective [Unknown]
